FAERS Safety Report 6494323-2 (Version None)
Quarter: 2009Q4

REPORT INFORMATION
  Report Type: 
  Country: None (occurrence: None)
  Receive Date: 20091214
  Receipt Date: 20090206
  Transmission Date: 20100525
  Serious: No
  Sender: FDA-Public Use
  Company Number: US-BRISTOL-MYERS SQUIBB COMPANY-14497820

PATIENT
  Age: 58 Year

DRUGS (4)
  1. ABILIFY [Suspect]
     Indication: SCHIZOAFFECTIVE DISORDER
     Dosage: DOSE REDUCED TO 25MG
  2. TOPAMAX [Concomitant]
  3. ZOLOFT [Concomitant]
  4. VICODIN [Concomitant]

REACTIONS (1)
  - DYSPHAGIA [None]
